FAERS Safety Report 9574930 (Version 2)
Quarter: 2014Q3

REPORT INFORMATION
  Report Type: Spontaneous
  Country: CA (occurrence: CA)
  Receive Date: 20131001
  Receipt Date: 20140914
  Transmission Date: 20150326
  Serious: Yes (Other)
  Sender: FDA-Public Use
  Company Number: CA-009507513-1309CAN014543

PATIENT
  Age: 44 Year
  Sex: Male

DRUGS (10)
  1. EMTRICITABINE (+) TENOFOVIR DISOPROXIL FUMARATE [Suspect]
     Active Substance: EMTRICITABINE\TENOFOVIR DISOPROXIL
     Indication: ANTIVIRAL TREATMENT
     Dosage: UNK
     Route: 065
     Dates: start: 201006
  2. CLOBAZAM [Interacting]
     Active Substance: CLOBAZAM
     Dosage: 10 MG IN 1 DAY
     Route: 065
     Dates: start: 201012
  3. VALPROIC ACID. [Suspect]
     Active Substance: VALPROIC ACID
     Dosage: 2500 MG IN 1 DAY
     Route: 065
     Dates: start: 200801
  4. INTELENCE [Interacting]
     Active Substance: ETRAVIRINE
     Indication: ANTIVIRAL TREATMENT
     Dosage: UNK
     Route: 065
     Dates: start: 201006
  5. VALPROIC ACID. [Suspect]
     Active Substance: VALPROIC ACID
     Indication: CONVULSION
     Dosage: 1500 MG IN 1 DAY
     Route: 065
     Dates: start: 200706
  6. CLOBAZAM [Interacting]
     Active Substance: CLOBAZAM
     Indication: CONVULSION
     Dosage: 10 MG IN 1 DAY
     Route: 065
     Dates: start: 200801
  7. CLOBAZAM [Interacting]
     Active Substance: CLOBAZAM
     Dosage: 20 MG IN 1 DAY
     Route: 065
     Dates: start: 200810
  8. VALPROIC ACID. [Suspect]
     Active Substance: VALPROIC ACID
     Dosage: 2000 MG IN 1 DAY
     Route: 065
     Dates: start: 201012
  9. ISENTRESS [Suspect]
     Active Substance: RALTEGRAVIR POTASSIUM
     Indication: ANTIVIRAL TREATMENT
     Route: 065
  10. KALETRA [Suspect]
     Active Substance: LOPINAVIR\RITONAVIR
     Indication: ANTIVIRAL TREATMENT
     Route: 065

REACTIONS (7)
  - Drug level increased [Unknown]
  - Somnolence [Recovered/Resolved]
  - Gait disturbance [Recovered/Resolved]
  - Asthenia [Recovered/Resolved]
  - Neurotoxicity [Recovered/Resolved]
  - Dysarthria [Recovered/Resolved]
  - Drug interaction [Unknown]

NARRATIVE: CASE EVENT DATE: 201007
